FAERS Safety Report 9790212 (Version 1)
Quarter: 2013Q4

REPORT INFORMATION
  Report Type: Spontaneous
  Country: US (occurrence: US)
  Receive Date: 20131231
  Receipt Date: 20131231
  Transmission Date: 20140711
  Serious: Yes (Other)
  Sender: FDA-Public Use
  Company Number: US-BAYER-2013-158657

PATIENT
  Sex: Female

DRUGS (1)
  1. MIRENA [Suspect]
     Dosage: 20 MCG/DL, CONT
     Route: 015
     Dates: start: 20110222, end: 20110601

REACTIONS (4)
  - Device dislocation [None]
  - Injury [None]
  - Medical device discomfort [None]
  - Medical device pain [None]
